FAERS Safety Report 4923433-3 (Version None)
Quarter: 2006Q1

REPORT INFORMATION
  Report Type: 
  Country: None (occurrence: None)
  Receive Date: 20060227
  Receipt Date: 20060220
  Transmission Date: 20060701
  Serious: Yes (Hospitalization, Other)
  Sender: FDA-Public Use
  Company Number: PHEH2006US02312

PATIENT
  Age: 58 Year
  Sex: Female

DRUGS (3)
  1. DIOVAN [Suspect]
     Indication: HYPERTENSION
     Dosage: 80 MG, QD
     Route: 048
     Dates: start: 20060112
  2. R-TANNA [Suspect]
     Indication: SINUSITIS
     Dosage: UNK, BID
     Route: 048
     Dates: end: 20060211
  3. PSEUDOEPHEDRINE [Concomitant]

REACTIONS (3)
  - ATRIAL FIBRILLATION [None]
  - BLOOD PRESSURE INCREASED [None]
  - HEART RATE INCREASED [None]
